FAERS Safety Report 7957316-1 (Version None)
Quarter: 2011Q4

REPORT INFORMATION
  Report Type: 
  Country: None (occurrence: None)
  Receive Date: 20111205
  Receipt Date: 20111029
  Transmission Date: 20120403
  Serious: No
  Sender: FDA-Public Use
  Company Number: US-BAYER-2011-106673

PATIENT
  Age: 46 Year
  Sex: Female
  Weight: 39 kg

DRUGS (1)
  1. ALEVE (CAPLET) [Suspect]
     Dosage: 1 DF, ONCE
     Dates: start: 20111029, end: 20111029

REACTIONS (2)
  - SKIN DISORDER [None]
  - PRURITUS [None]
